FAERS Safety Report 18572208 (Version 1)
Quarter: 2020Q4

REPORT INFORMATION
  Report Type: Report from Study
  Country: JP (occurrence: JP)
  Receive Date: 20201203
  Receipt Date: 20201203
  Transmission Date: 20210114
  Serious: Yes (Other)
  Sender: FDA-Public Use
  Company Number: JP-SAKK-2020SA344647AA

PATIENT

DRUGS (15)
  1. AFLIBERCEPT [Suspect]
     Active Substance: AFLIBERCEPT
     Dosage: 4 MG/KG, 1X
     Route: 041
     Dates: start: 20190327, end: 20190327
  2. AFLIBERCEPT [Suspect]
     Active Substance: AFLIBERCEPT
     Dosage: 4 MG/KG, Q3W
     Route: 041
     Dates: start: 20191106, end: 20200129
  3. IRINOTECAN [Suspect]
     Active Substance: IRINOTECAN
     Dosage: 150 MG/M2, Q3W
     Route: 065
     Dates: start: 20190327, end: 20190417
  4. AFLIBERCEPT [Suspect]
     Active Substance: AFLIBERCEPT
     Dosage: 4 MG/KG, Q3W
     Route: 041
     Dates: start: 20190703, end: 20190724
  5. IRINOTECAN [Suspect]
     Active Substance: IRINOTECAN
     Indication: RECTAL CANCER
     Dosage: 150 MG/M2, 1X
     Route: 065
     Dates: start: 20190522, end: 20190522
  6. FLUOROURACIL. [Suspect]
     Active Substance: FLUOROURACIL
     Dosage: 400 MG/M2, Q3W
     Route: 040
     Dates: start: 20190327, end: 20190417
  7. AFLIBERCEPT [Suspect]
     Active Substance: AFLIBERCEPT
     Dosage: 4 MG/KG, 1X
     Route: 041
     Dates: start: 20190904, end: 20190904
  8. FLUOROURACIL. [Suspect]
     Active Substance: FLUOROURACIL
     Indication: RECTAL CANCER
     Dosage: 2400 MG/M2, 1X
     Route: 041
     Dates: start: 20190522, end: 20190522
  9. LEUCOVORIN AMAXA [Concomitant]
     Dosage: 200 MG/M2, 1X
     Route: 065
     Dates: start: 20190522, end: 20190522
  10. LEUCOVORIN AMAXA [Concomitant]
     Dosage: 200 MG/M2, Q3W
     Route: 065
     Dates: start: 20190703, end: 20200129
  11. LEUCOVORIN AMAXA [Concomitant]
     Indication: RECTAL CANCER
     Dosage: 200 MG/M2, Q3W
     Route: 065
     Dates: start: 20190327, end: 20190417
  12. AFLIBERCEPT [Suspect]
     Active Substance: AFLIBERCEPT
     Indication: RECTAL CANCER
     Dosage: 4 MG/KG, 1X
     Route: 041
     Dates: start: 20190522, end: 20190522
  13. IRINOTECAN [Suspect]
     Active Substance: IRINOTECAN
     Dosage: 135 MG/M2, Q3W
     Route: 065
     Dates: start: 20190703, end: 20200129
  14. FLUOROURACIL. [Suspect]
     Active Substance: FLUOROURACIL
     Dosage: 2400 MG/M2, Q3W
     Route: 041
     Dates: start: 20190327, end: 20190417
  15. FLUOROURACIL. [Suspect]
     Active Substance: FLUOROURACIL
     Dosage: 2160 MG/M2, Q3W
     Route: 041
     Dates: start: 20190703, end: 20200129

REACTIONS (3)
  - Diarrhoea [Recovered/Resolved]
  - Blood creatinine increased [Not Recovered/Not Resolved]
  - Hyperkalaemia [Recovered/Resolved]

NARRATIVE: CASE EVENT DATE: 20190523
